FAERS Safety Report 12216432 (Version 1)
Quarter: 2016Q1

REPORT INFORMATION
  Report Type: Spontaneous
  Country: US (occurrence: None)
  Receive Date: 20160328
  Receipt Date: 20160328
  Transmission Date: 20160526
  Serious: Yes (Hospitalization, Other)
  Sender: FDA-Public Use
  Company Number: None

PATIENT
  Age: 33 Year
  Sex: Male
  Weight: 131.8 kg

DRUGS (1)
  1. DAPSONE. [Suspect]
     Active Substance: DAPSONE
     Indication: HIDRADENITIS
     Route: 048
     Dates: start: 20151211, end: 20160314

REACTIONS (6)
  - Methaemoglobinaemia [None]
  - Dyspnoea [None]
  - Cough [None]
  - Dyspnoea exertional [None]
  - Hypoxia [None]
  - Fatigue [None]

NARRATIVE: CASE EVENT DATE: 20160314
